FAERS Safety Report 24970699 (Version 2)
Quarter: 2025Q1

REPORT INFORMATION
  Report Type: Spontaneous
  Country: US (occurrence: US)
  Receive Date: 20250214
  Receipt Date: 20250222
  Transmission Date: 20250409
  Serious: No
  Sender: BAYER HEALTHCARE LLC
  Company Number: US-BAYER-2025A019666

PATIENT
  Age: 52 Year
  Sex: Female

DRUGS (2)
  1. ASTEPRO [Suspect]
     Active Substance: AZELASTINE HYDROCHLORIDE
     Indication: Middle ear effusion
     Route: 045
  2. ASTEPRO [Suspect]
     Active Substance: AZELASTINE HYDROCHLORIDE
     Indication: Upper-airway cough syndrome

REACTIONS (5)
  - Nasal inflammation [Recovering/Resolving]
  - Nasal pruritus [Recovered/Resolved]
  - Product prescribing issue [Unknown]
  - Drug hypersensitivity [Recovering/Resolving]
  - Rhinalgia [Recovering/Resolving]
